FAERS Safety Report 15017718 (Version 1)
Quarter: 2018Q2

REPORT INFORMATION
  Report Type: Spontaneous
  Country: DE (occurrence: DE)
  Receive Date: 20180615
  Receipt Date: 20180615
  Transmission Date: 20180711
  Serious: Yes (Other)
  Sender: FDA-Public Use
  Company Number: DE-DRREDDYS-GER/GER/18/0100065

PATIENT
  Age: 1 Day
  Sex: Female
  Weight: 3.6 kg

DRUGS (2)
  1. LAMOTRIGINE. [Suspect]
     Active Substance: LAMOTRIGINE
     Indication: PARTIAL SEIZURES
     Dosage: 1300 (MG/D)/ INITIAL 600 MG/D, DOSAGE INCREASED FROM WK 10 TO 450-400-450 MG DAILY
     Route: 064
     Dates: start: 20170110, end: 20171018
  2. PARACETAMOL 500 MG [Concomitant]
     Active Substance: ACETAMINOPHEN
     Indication: HEADACHE
     Dosage: FOUR TIMES DURING PREGNANCY

REACTIONS (3)
  - Somnolence [Recovering/Resolving]
  - Selective eating disorder [Recovered/Resolved]
  - Foetal exposure during pregnancy [Unknown]

NARRATIVE: CASE EVENT DATE: 20171018
